FAERS Safety Report 6851144-6 (Version None)
Quarter: 2010Q3

REPORT INFORMATION
  Report Type: 
  Country: None (occurrence: None)
  Receive Date: 20100716
  Receipt Date: 20071226
  Transmission Date: 20110219
  Serious: No
  Sender: FDA-Public Use
  Company Number: US-PFIZER INC-2007090929

PATIENT
  Sex: Female

DRUGS (3)
  1. CHANTIX [Suspect]
  2. NEXIUM [Interacting]
  3. TAMOXIFEN CITRATE [Interacting]

REACTIONS (4)
  - ABDOMINAL DISCOMFORT [None]
  - DRUG INTERACTION [None]
  - NAUSEA [None]
  - VOMITING [None]
